FAERS Safety Report 19003040 (Version 4)
Quarter: 2022Q2

REPORT INFORMATION
  Report Type: Spontaneous
  Country: US (occurrence: US)
  Receive Date: 20210312
  Receipt Date: 20220425
  Transmission Date: 20220720
  Serious: Yes (Other)
  Sender: FDA-Public Use
  Company Number: US-PFIZER INC-2021187464

PATIENT
  Age: 60 Year
  Sex: Female
  Weight: 65.77 kg

DRUGS (4)
  1. CYTOMEL [Suspect]
     Active Substance: LIOTHYRONINE SODIUM
     Indication: Hypothyroidism
     Dosage: 15 UG, DAILY
     Route: 048
  2. CYTOMEL [Suspect]
     Active Substance: LIOTHYRONINE SODIUM
     Indication: Fluid retention
     Dosage: 5 UG, 3X/DAY
  3. CYTOMEL [Suspect]
     Active Substance: LIOTHYRONINE SODIUM
     Indication: Fatigue
     Dosage: UNK
  4. CYTOMEL [Suspect]
     Active Substance: LIOTHYRONINE SODIUM
     Dosage: 5 UG, DAILY (5 MCG AND TAKES 5 A NIGHT BEFORE BED/25 MCG BEFORE BED BY MOUTH)
     Route: 048

REACTIONS (12)
  - Pericardial effusion [Unknown]
  - Drug ineffective [Unknown]
  - Dyspepsia [Unknown]
  - Fatigue [Unknown]
  - Oedema [Unknown]
  - Product taste abnormal [Unknown]
  - Taste disorder [Unknown]
  - Alopecia [Unknown]
  - Heart rate increased [Unknown]
  - Blood pressure increased [Unknown]
  - Full blood count abnormal [Unknown]
  - Intentional product misuse [Unknown]

NARRATIVE: CASE EVENT DATE: 20210210
